FAERS Safety Report 23149902 (Version 1)
Quarter: 2023Q4

REPORT INFORMATION
  Report Type: Report from Study
  Country: US (occurrence: US)
  Receive Date: 20231106
  Receipt Date: 20231106
  Transmission Date: 20240109
  Serious: Yes (Hospitalization, Other)
  Sender: FDA-Public Use
  Company Number: US-ABBVIE-5413856

PATIENT
  Age: 73 Year
  Sex: Male

DRUGS (1)
  1. RINVOQ [Suspect]
     Active Substance: UPADACITINIB
     Indication: Product used for unknown indication
     Route: 048

REACTIONS (8)
  - Orthostatic hypotension [Not Recovered/Not Resolved]
  - Skin ulcer [Not Recovered/Not Resolved]
  - Adverse drug reaction [Recovering/Resolving]
  - Squamous cell carcinoma of skin [Not Recovered/Not Resolved]
  - Mobility decreased [Not Recovered/Not Resolved]
  - Rash [Not Recovered/Not Resolved]
  - Cognitive disorder [Unknown]
  - Dysstasia [Unknown]

NARRATIVE: CASE EVENT DATE: 20220201
